FAERS Safety Report 10088015 (Version 2)
Quarter: 2014Q3

REPORT INFORMATION
  Report Type: Spontaneous
  Country: ES (occurrence: ES)
  Receive Date: 20140420
  Receipt Date: 20140823
  Transmission Date: 20150326
  Serious: Yes (Hospitalization)
  Sender: FDA-Public Use
  Company Number: PHHY2014ES047573

PATIENT
  Age: 33 Year
  Sex: Male

DRUGS (23)
  1. EPOETIN ALFA [Concomitant]
     Active Substance: ERYTHROPOIETIN
     Indication: ANAEMIA
  2. DEFLAZACORT [Concomitant]
     Active Substance: DEFLAZACORT
     Dosage: 30 MG/ 24 H (BR)
     Route: 048
  3. TORASEMIDE [Concomitant]
     Active Substance: TORSEMIDE
     Dosage: 5 MG/ 24 H (BR)
  4. AMLODIPINE [Concomitant]
     Active Substance: AMLODIPINE BESYLATE
     Dosage: 5 MG/ 24 H (BR)
     Route: 048
  5. FERROGLYCINE SULFATE COMPLEX [Interacting]
     Active Substance: FERROGLYCINE SULFATE
     Indication: ANAEMIA
     Dosage: 30 MG, FE (II)/ 8 H (BR-LU-DI)
     Route: 048
  6. VALGANCICLOVIR [Concomitant]
     Active Substance: VALGANCICLOVIR
     Dosage: 900 MG/ 24 H (BR)
  7. CICLOSPORIN [Interacting]
     Active Substance: CYCLOSPORINE
     Dosage: 100 MG, Q12H
     Route: 065
  8. METHYLPREDNISOLONE [Suspect]
     Active Substance: METHYLPREDNISOLONE
     Indication: IMMUNOSUPPRESSION
     Dosage: 500 MG/24 H
     Route: 042
  9. FERROUS GLUCONATE [Interacting]
     Active Substance: FERROUS GLUCONATE
     Indication: ANAEMIA
     Route: 048
  10. RANITIDINE [Concomitant]
     Active Substance: RANITIDINE\RANITIDINE HYDROCHLORIDE
     Dosage: 150 MG /24 H (NI)
     Route: 048
  11. MYCOPHENOLATE MOFETIL. [Suspect]
     Active Substance: MYCOPHENOLATE MOFETIL
     Indication: IMMUNOSUPPRESSION
     Dosage: 500 MG, Q8H
     Route: 042
  12. FUROSEMIDE. [Concomitant]
     Active Substance: FUROSEMIDE
     Indication: OLIGURIA
  13. CICLOSPORIN [Suspect]
     Active Substance: CYCLOSPORINE
     Indication: IMMUNOSUPPRESSION
     Dosage: 100 MG, Q12H
     Route: 042
  14. CICLOSPORIN [Interacting]
     Active Substance: CYCLOSPORINE
     Dosage: 200 MG, Q12H
     Route: 065
  15. METHYLPREDNISOLONE [Suspect]
     Active Substance: METHYLPREDNISOLONE
     Dosage: 500 MG
     Route: 042
  16. MYCOPHENOLATE MOFETIL. [Suspect]
     Active Substance: MYCOPHENOLATE MOFETIL
     Dosage: 500 MG/ 8 H (BR-LU-DI)
     Route: 048
  17. ATORVASTATIN [Concomitant]
     Active Substance: ATORVASTATIN
     Dosage: 10 MG/ 24 H (DI)
     Route: 048
  18. CICLOSPORIN [Interacting]
     Active Substance: CYCLOSPORINE
     Dosage: 250 MG/ 12 HRS (BR-DI)
     Route: 048
  19. SPIRONOLACTONE. [Concomitant]
     Active Substance: SPIRONOLACTONE
     Indication: OLIGURIA
  20. COTRIMOXAZOLE [Concomitant]
     Active Substance: SULFAMETHOXAZOLE\TRIMETHOPRIM
     Dosage: 800/160 MG/ 48 H (LU)
     Route: 048
  21. CICLOSPORIN [Interacting]
     Active Substance: CYCLOSPORINE
     Dosage: 250 MG, Q12H
     Route: 048
  22. FERRIMANNITOL OVALBUMIN [Suspect]
     Active Substance: IRON
     Indication: ANAEMIA
     Dosage: 300 MG/24 H (40 MG FE III) (LU)
     Route: 048
  23. ACETYLSALICYLIC ACID [Concomitant]
     Active Substance: ASPIRIN
     Dosage: 100 MG/ 24 H (LU)
     Route: 048

REACTIONS (3)
  - Immunosuppressant drug level decreased [Recovering/Resolving]
  - Heart transplant rejection [Unknown]
  - Drug interaction [Unknown]
